FAERS Safety Report 8976952 (Version 2)
Quarter: 2013Q1

REPORT INFORMATION
  Report Type: Spontaneous
  Country: JP (occurrence: JP)
  Receive Date: 20121220
  Receipt Date: 20130128
  Transmission Date: 20140127
  Serious: Yes (Hospitalization)
  Sender: FDA-Public Use
  Company Number: JP-NOVOPROD-366749

PATIENT
  Age: 4 Year
  Sex: Male
  Weight: 13 kg

DRUGS (3)
  1. NORDITROPIN FLEXPRO [Suspect]
     Indication: BODY HEIGHT BELOW NORMAL
     Dosage: 0.35 MG, QD
     Route: 058
     Dates: start: 20110724
  2. NORDITROPIN FLEXPRO [Suspect]
     Dosage: 0.4 MG, QD
     Route: 058
     Dates: start: 20120125
  3. NORDITROPIN FLEXPRO [Suspect]
     Dosage: 0.5 MG, QD
     Route: 058
     Dates: start: 20120516, end: 20120904

REACTIONS (1)
  - Acute lymphocytic leukaemia [Not Recovered/Not Resolved]
